FAERS Safety Report 7513869-9 (Version None)
Quarter: 2011Q2

REPORT INFORMATION
  Report Type: 
  Country: None (occurrence: None)
  Receive Date: 20110531
  Receipt Date: 20110520
  Transmission Date: 20111010
  Serious: Yes (Other)
  Sender: FDA-Public Use
  Company Number: PHHY2011US35044

PATIENT
  Sex: Male

DRUGS (3)
  1. VITAMINS [Concomitant]
     Dosage: UNK
  2. GILENYA [Suspect]
     Indication: MULTIPLE SCLEROSIS
     Dosage: 0.5 MG, QD
     Route: 048
     Dates: start: 20110323, end: 20110430
  3. FAMPRIDINE [Suspect]
     Dosage: 10 MG, QD
     Route: 048

REACTIONS (10)
  - BLOOD THYROID STIMULATING HORMONE INCREASED [None]
  - FEELING ABNORMAL [None]
  - ALANINE AMINOTRANSFERASE INCREASED [None]
  - FALL [None]
  - ASPARTATE AMINOTRANSFERASE INCREASED [None]
  - LYMPHOCYTE COUNT DECREASED [None]
  - LOSS OF CONSCIOUSNESS [None]
  - DIZZINESS [None]
  - ASTHENIA [None]
  - CENTRAL NERVOUS SYSTEM LESION [None]
